FAERS Safety Report 4451567-9 (Version None)
Quarter: 2004Q3

REPORT INFORMATION
  Report Type: 
  Country: None (occurrence: None)
  Receive Date: 20040915
  Receipt Date: 20040902
  Transmission Date: 20050211
  Serious: Yes (Life-Threatening, Hospitalization)
  Sender: FDA-Public Use
  Company Number: MC200400202

PATIENT
  Age: 62 Year
  Sex: Female
  Weight: 71.8 kg

DRUGS (9)
  1. ANGIOMAX [Suspect]
     Dosage: 7.5 ML, BOLUS, IV BOLUS;  18.2 ML, HR, INTRAVENOUS
     Route: 040
     Dates: start: 20040809, end: 20040809
  2. ANGIOMAX [Suspect]
     Dosage: 7.5 ML, BOLUS, IV BOLUS;  18.2 ML, HR, INTRAVENOUS
     Route: 040
     Dates: start: 20040809, end: 20040809
  3. PLAVIX [Concomitant]
  4. HEPARIN [Concomitant]
  5. PROTONIX [Concomitant]
  6. EFFEXOR [Concomitant]
  7. LISINOPRIL W/HYDROCHLOROTHIAZIDE (LISINOPRIL, HYDROCHLOROTHIAZIDE) [Concomitant]
  8. ISOSORBIDE (ISOSORBIDE) [Concomitant]
  9. ACETYLSALICYLIC ACID SRT [Concomitant]

REACTIONS (4)
  - CARDIO-RESPIRATORY ARREST [None]
  - CORONARY ARTERY OCCLUSION [None]
  - PROCEDURAL COMPLICATION [None]
  - THROMBOSIS [None]
